FAERS Safety Report 4520419-8 (Version None)
Quarter: 2004Q4

REPORT INFORMATION
  Report Type: 
  Country: None (occurrence: None)
  Receive Date: 20041203
  Receipt Date: 20041124
  Transmission Date: 20050328
  Serious: Yes (Other)
  Sender: FDA-Public Use
  Company Number: 2004099114

PATIENT
  Age: 80 Year
  Sex: Male

DRUGS (5)
  1. SORTIS (ATORVASTATIN) [Suspect]
     Indication: ILL-DEFINED DISORDER
     Dosage: 40 MG (40 MG, 1 IN 1 D), ORAL
     Route: 048
     Dates: start: 20041101, end: 20041113
  2. OMEPRAZOLE MAGNESIUM (OMEPRAZOLE MAGNESIUM) [Concomitant]
  3. PHENPROCOUMON (PHENPROCOUMON) [Concomitant]
  4. LERCANIDIPINE [Concomitant]
  5. DIAZEPAM [Concomitant]

REACTIONS (1)
  - INTESTINAL HAEMORRHAGE [None]
